FAERS Safety Report 16215606 (Version 6)
Quarter: 2019Q3

REPORT INFORMATION
  Report Type: Report from Study
  Country: US (occurrence: US)
  Receive Date: 20190419
  Receipt Date: 20190920
  Transmission Date: 20191004
  Serious: Yes (Hospitalization, Disabling, Other)
  Sender: FDA-Public Use
  Company Number: US-REGENERON PHARMACEUTICALS, INC.-2019-19724

PATIENT

DRUGS (5)
  1. EYLEA [Suspect]
     Active Substance: AFLIBERCEPT
     Indication: EYE DISORDER
     Dosage: UNK, EVERY 12 WEEKS, SOMETIMES EVERY 5 WEEKS
     Route: 031
     Dates: start: 2014
  2. EYLEA [Suspect]
     Active Substance: AFLIBERCEPT
     Dosage: UNK, OD
     Route: 031
     Dates: start: 20181119, end: 20181119
  3. EYLEA [Suspect]
     Active Substance: AFLIBERCEPT
     Dosage: UNK, OS
     Route: 031
  4. MEDROL [Suspect]
     Active Substance: METHYLPREDNISOLONE
     Indication: PRODUCT USED FOR UNKNOWN INDICATION
  5. ADVIL (MEFENAMIC ACID) [Concomitant]
     Active Substance: MEFENAMIC ACID
     Indication: ARTHRITIS

REACTIONS (15)
  - Hypertension [Unknown]
  - Eye abscess [Unknown]
  - Endophthalmitis [Recovered/Resolved]
  - Vitrectomy [Unknown]
  - Cataract [Unknown]
  - Hypersensitivity [Unknown]
  - Blindness transient [Recovered/Resolved]
  - Drug interaction [Unknown]
  - Blindness [Unknown]
  - Drug hypersensitivity [Unknown]
  - Wrong technique in product usage process [Unknown]
  - Mental disorder [Unknown]
  - Inadequate aseptic technique in use of product [Unknown]
  - Vision blurred [Unknown]
  - Arthritis [Unknown]

NARRATIVE: CASE EVENT DATE: 20181119
